FAERS Safety Report 15763236 (Version 2)
Quarter: 2020Q2

REPORT INFORMATION
  Report Type: Spontaneous
  Country: US (occurrence: US)
  Receive Date: 20181226
  Receipt Date: 20200412
  Transmission Date: 20200713
  Serious: No
  Sender: FDA-Public Use
  Company Number: US-AMGEN INC.-USASP2018184079

PATIENT

DRUGS (1)
  1. AIMOVIG [Suspect]
     Active Substance: ERENUMAB-AOOE
     Indication: MIGRAINE
     Dosage: UNK
     Route: 065
     Dates: start: 2018

REACTIONS (5)
  - Injection site mass [Unknown]
  - Dyspnoea [Unknown]
  - Wrong technique in product usage process [Unknown]
  - Injection site swelling [Unknown]
  - Injection site pain [Unknown]

NARRATIVE: CASE EVENT DATE: 2018
